FAERS Safety Report 25592025 (Version 2)
Quarter: 2025Q4

REPORT INFORMATION
  Report Type: Report from Study
  Country: US (occurrence: US)
  Receive Date: 20250722
  Receipt Date: 20251009
  Transmission Date: 20260118
  Serious: No
  Sender: MARINUS PHARMACEUTICALS
  Company Number: US-MARINUS PHARMACEUTICALS, INC.-MAR2025000145

PATIENT

DRUGS (1)
  1. GANAXOLONE [Suspect]
     Active Substance: GANAXOLONE
     Indication: Seizure
     Dosage: 9 MILLILITER, QD, 12 ML BID
     Route: 048

REACTIONS (1)
  - Product dose omission issue [Unknown]
